FAERS Safety Report 9899718 (Version 2)
Quarter: 2014Q1

REPORT INFORMATION
  Report Type: Spontaneous
  Country: US (occurrence: US)
  Receive Date: 20140214
  Receipt Date: 20140214
  Transmission Date: 20141002
  Serious: No
  Sender: FDA-Public Use
  Company Number: US-GILEAD-2011-0043155

PATIENT
  Sex: Female

DRUGS (7)
  1. LETAIRIS [Suspect]
     Indication: PULMONARY HYPERTENSION
     Dosage: 10 MG, UNK
     Route: 048
     Dates: start: 20080709
  2. LETAIRIS [Suspect]
     Indication: SLEEP APNOEA SYNDROME
     Dosage: 5 MG, UNK
     Route: 048
  3. MEVACOR [Suspect]
     Dosage: UNK
  4. REVATIO [Concomitant]
  5. GLIPIZIDE [Concomitant]
  6. COZAAR [Concomitant]
  7. PRADAXA [Concomitant]
     Indication: ATRIAL FLUTTER
     Dosage: UNK
     Dates: start: 20110810, end: 20111011

REACTIONS (1)
  - Transaminases increased [Recovered/Resolved]
